FAERS Safety Report 6289435-2 (Version None)
Quarter: 2009Q3

REPORT INFORMATION
  Report Type: 
  Country: None (occurrence: None)
  Receive Date: 20090728
  Receipt Date: 20090728
  Transmission Date: 20100115
  Serious: Yes (Other)
  Sender: FDA-Public Use
  Company Number: None

PATIENT
  Age: 49 Year
  Sex: Female
  Weight: 51.7101 kg

DRUGS (7)
  1. SUMATRIPTAN SUCCINATE [Suspect]
     Indication: MIGRAINE
     Dosage: 100MG PRN -1 TABLET- PO
     Route: 048
     Dates: start: 20090710, end: 20090714
  2. IMITREX [Suspect]
     Indication: MIGRAINE
     Dosage: 4MG UP TO 8MG PRN SQ
     Route: 058
     Dates: start: 20070101, end: 20090714
  3. IMITREX [Suspect]
     Indication: VOMITING
     Dosage: 4MG UP TO 8MG PRN SQ
     Route: 058
     Dates: start: 20070101, end: 20090714
  4. CIMETIDINE [Concomitant]
  5. ZYRTEC [Interacting]
  6. DIPHENHYDRAMINE HCL [Concomitant]
  7. HYDROXOZINE PAMOATE [Concomitant]

REACTIONS (2)
  - RASH GENERALISED [None]
  - URTICARIA [None]
